FAERS Safety Report 14742930 (Version 4)
Quarter: 2019Q2

REPORT INFORMATION
  Report Type: Spontaneous
  Country: US (occurrence: US)
  Receive Date: 20180410
  Receipt Date: 20190522
  Transmission Date: 20190711
  Serious: Yes (Hospitalization)
  Sender: FDA-Public Use
  Company Number: US-ACTELION-A-US2018-170106

PATIENT
  Sex: Male
  Weight: 84.35 kg

DRUGS (22)
  1. UPTRAVI [Suspect]
     Active Substance: SELEXIPAG
     Dosage: 1200 MCG, BID
     Route: 048
  2. LEVOFLOXACIN. [Concomitant]
     Active Substance: LEVOFLOXACIN
  3. UPTRAVI [Suspect]
     Active Substance: SELEXIPAG
     Indication: PULMONARY ARTERIAL HYPERTENSION
     Dosage: 1400 MCG, BID
     Route: 048
  4. ESOMEPRAZOLE. [Concomitant]
     Active Substance: ESOMEPRAZOLE MAGNESIUM
  5. SILDENAFIL CITRATE. [Concomitant]
     Active Substance: SILDENAFIL CITRATE
  6. DILTIAZEM. [Concomitant]
     Active Substance: DILTIAZEM
  7. CARTIA XT [Concomitant]
     Active Substance: DILTIAZEM HYDROCHLORIDE
     Dosage: 120 MG, QD
  8. FUROSEMIDE. [Concomitant]
     Active Substance: FUROSEMIDE
     Dosage: 40 MG, QD
  9. OPSUMIT [Concomitant]
     Active Substance: MACITENTAN
     Indication: PULMONARY ARTERIAL HYPERTENSION
     Dosage: UNK
  10. AUGMENTIN [Concomitant]
     Active Substance: AMOXICILLIN\CLAVULANATE POTASSIUM
  11. SPIRIVA [Concomitant]
     Active Substance: TIOTROPIUM BROMIDE MONOHYDRATE
  12. ALBUTEROL HFA [Concomitant]
     Active Substance: ALBUTEROL SULFATE
     Dosage: INHALE 2 PUFFS IN TO THE LUNGS EVERY 4 HOURS
  13. DIPHENHYDRAMINE. [Concomitant]
     Active Substance: DIPHENHYDRAMINE
     Dosage: 25 MG, QD
  14. HORIZANT [Concomitant]
     Active Substance: GABAPENTIN ENACARBIL
     Dosage: 600 MG
  15. GABAPENTIN. [Concomitant]
     Active Substance: GABAPENTIN
  16. BACLOFEN. [Concomitant]
     Active Substance: BACLOFEN
     Dosage: 10 MG, TID
  17. CLONAZEPAM. [Concomitant]
     Active Substance: CLONAZEPAM
     Dosage: 1 MG
  18. HYDROCHLOROTHIAZIDE. [Concomitant]
     Active Substance: HYDROCHLOROTHIAZIDE
  19. VENTOLIN HFA [Concomitant]
     Active Substance: ALBUTEROL SULFATE
  20. FLOVENT HFA [Concomitant]
     Active Substance: FLUTICASONE PROPIONATE
     Dosage: UNK
     Dates: start: 20180918
  21. HYDRALAZINE [Concomitant]
     Active Substance: HYDRALAZINE HYDROCHLORIDE
  22. ACETAMINOPHEN. [Concomitant]
     Active Substance: ACETAMINOPHEN
     Dosage: 650 MG, EVERY 6 HRS AS NEEDED

REACTIONS (19)
  - Abscess bacterial [Unknown]
  - Infection [Unknown]
  - Accidental overdose [Recovered/Resolved]
  - Cellulitis staphylococcal [Unknown]
  - Skin exfoliation [Unknown]
  - Oedema [Unknown]
  - Multiple-drug resistance [Unknown]
  - Pseudomonas infection [Unknown]
  - Skin disorder [Unknown]
  - Skin plaque [Unknown]
  - Erythema [Unknown]
  - Skin graft [Unknown]
  - Pain [Unknown]
  - Culture wound [Unknown]
  - Peripheral venous disease [Unknown]
  - Dermatitis [Unknown]
  - Cellulitis [Unknown]
  - Rash [Unknown]
  - Swelling [Unknown]
